FAERS Safety Report 15402046 (Version 1)
Quarter: 2018Q3

REPORT INFORMATION
  Report Type: Spontaneous
  Country: US (occurrence: US)
  Receive Date: 20180914
  Receipt Date: 20180914
  Transmission Date: 20181010
  Serious: Yes (Disabling)
  Sender: FDA-Public Use
  Company Number: None

PATIENT
  Age: 47 Year
  Sex: Female
  Weight: 63.96 kg

DRUGS (17)
  1. ATORVASTATIN [Concomitant]
     Active Substance: ATORVASTATIN
  2. GLUCAGON. [Concomitant]
     Active Substance: GLUCAGON
  3. MAGNESIUM [Concomitant]
     Active Substance: MAGNESIUM
  4. TOUJEO [Concomitant]
     Active Substance: INSULIN GLARGINE
  5. SOLU?MEDROL [Suspect]
     Active Substance: METHYLPREDNISOLONE SODIUM SUCCINATE
  6. NOVOLOG [Concomitant]
     Active Substance: INSULIN ASPART
  7. LISINOPRIL. [Concomitant]
     Active Substance: LISINOPRIL
  8. ODANSETRON [Concomitant]
     Active Substance: ONDANSETRON
  9. PHENERGAN [Concomitant]
     Active Substance: PROMETHAZINE HYDROCHLORIDE
  10. VITAMIN D [Concomitant]
     Active Substance: CHOLECALCIFEROL
  11. METOPROLOL. [Concomitant]
     Active Substance: METOPROLOL
  12. VICOPROFEN [Concomitant]
     Active Substance: HYDROCODONE BITARTRATE\IBUPROFEN
  13. BENADRYL [Concomitant]
     Active Substance: DIPHENHYDRAMINE HYDROCHLORIDE
  14. AIMOVIG [Concomitant]
     Active Substance: ERENUMAB-AOOE
     Indication: MIGRAINE
     Dosage: ?          QUANTITY:1 DF DOSAGE FORM;?
     Route: 006
  15. DEPAKOTE [Suspect]
     Active Substance: DIVALPROEX SODIUM
  16. TRAZODONE [Concomitant]
     Active Substance: TRAZODONE HYDROCHLORIDE
  17. BACLOFEN. [Concomitant]
     Active Substance: BACLOFEN

REACTIONS (13)
  - Chills [None]
  - Pain [None]
  - Neck pain [None]
  - Sneezing [None]
  - Headache [None]
  - Tremor [None]
  - Palpitations [None]
  - Visual impairment [None]
  - Tinnitus [None]
  - Dizziness [None]
  - Pyrexia [None]
  - Infusion related reaction [None]
  - Gait disturbance [None]

NARRATIVE: CASE EVENT DATE: 20180728
